FAERS Safety Report 7470033-X (Version None)
Quarter: 2011Q2

REPORT INFORMATION
  Report Type: 
  Country: None (occurrence: None)
  Receive Date: 20110510
  Receipt Date: 20110428
  Transmission Date: 20111010
  Serious: Yes (Other)
  Sender: FDA-Public Use
  Company Number: JP-PFIZER INC-2011088674

PATIENT
  Age: 70 Year
  Sex: Male

DRUGS (5)
  1. DIOVAN [Concomitant]
     Dosage: 80 MG, DAILY
     Dates: start: 20110304
  2. NIFE - SLOW RELEASE [Concomitant]
     Dosage: UNK
     Dates: start: 20101001
  3. DIOVAN [Concomitant]
     Indication: HYPERTENSION
     Dosage: 80 MG, DAILY
     Dates: start: 20071009, end: 20110225
  4. MIGLITOL [Suspect]
     Indication: DIABETES MELLITUS
     Dosage: 150 MG, 3X/DAY
     Dates: start: 20100903, end: 20110225
  5. NIFE - SLOW RELEASE [Concomitant]
     Dosage: UNK
     Dates: start: 20071009, end: 20100903

REACTIONS (1)
  - LIVER DISORDER [None]
